FAERS Safety Report 9601000 (Version 2)
Quarter: 2013Q4

REPORT INFORMATION
  Report Type: Spontaneous
  Country: US (occurrence: US)
  Receive Date: 20131004
  Receipt Date: 20131004
  Transmission Date: 20140711
  Serious: Yes (Hospitalization)
  Sender: FDA-Public Use
  Company Number: US-AMGEN-USASP2013026589

PATIENT
  Age: 59 Year
  Sex: Female
  Weight: 77.1 kg

DRUGS (17)
  1. ENBREL [Suspect]
     Indication: PRODUCT USED FOR UNKNOWN INDICATION
     Dosage: 25 MG, TWICE A WEEK
     Route: 058
  2. BREWERS YEAST                      /00171501/ [Concomitant]
     Dosage: UNK
  3. FIBER [Concomitant]
     Dosage: UNK
  4. YUCCA BAOBAB KUR [Concomitant]
     Dosage: 450 MG, UNK
  5. VITAMIN C                          /00008001/ [Concomitant]
     Dosage: 500 MG, UNK
  6. OMEPRAZOLE [Concomitant]
     Dosage: 10 MG, UNK
  7. GUAIFENESIN [Concomitant]
     Dosage: 200 MG, UNK
  8. ALAVERT [Concomitant]
     Dosage: 10 MG, UNK
  9. VITAMIN B6 [Concomitant]
     Dosage: 25 MG, UNK
  10. VITAMIN B 12 [Concomitant]
     Dosage: 1000 CR, UNK
  11. PROBIOTIC                          /06395501/ [Concomitant]
     Dosage: UNK
  12. VITAMIN D                          /00107901/ [Concomitant]
     Dosage: 400 UNIT, UNK
  13. ADVAIR [Concomitant]
     Dosage: 500/50, UNK, UNK
  14. ORENCIA [Concomitant]
     Dosage: 125 MG/ML, UNK
  15. CYCLOBENZAPRINE [Concomitant]
     Dosage: 5 MG, UNK
  16. AMITRIPTYLINE [Concomitant]
     Dosage: 50 MG, UNK
  17. PERCOCET                           /00867901/ [Concomitant]
     Dosage: 5-325 MG

REACTIONS (8)
  - Pneumonia [Recovered/Resolved]
  - Malaise [Recovered/Resolved]
  - Asthma [Recovering/Resolving]
  - Feeling abnormal [Recovered/Resolved]
  - Pain [Recovered/Resolved]
  - Fatigue [Recovered/Resolved]
  - Sinusitis [Recovered/Resolved]
  - Drug ineffective [Recovered/Resolved]
